FAERS Safety Report 14837727 (Version 1)
Quarter: 2018Q2

REPORT INFORMATION
  Report Type: Spontaneous
  Country: US (occurrence: US)
  Receive Date: 20180418
  Receipt Date: 20180418
  Transmission Date: 20180711
  Serious: Yes (Other)
  Sender: FDA-Public Use
  Company Number: None

PATIENT
  Sex: Male

DRUGS (2)
  1. GLEOSTINE [Suspect]
     Active Substance: LOMUSTINE
     Indication: BRAIN NEOPLASM MALIGNANT
     Dosage: ?          OTHER FREQUENCY:ON DAY ONE;?
     Route: 048
     Dates: start: 20171024
  2. DILAUDID [Concomitant]
     Active Substance: HYDROMORPHONE HYDROCHLORIDE

REACTIONS (8)
  - Influenza [None]
  - Platelet count decreased [None]
  - Hepatic enzyme abnormal [None]
  - Nausea [None]
  - Oesophageal rupture [None]
  - Haemoptysis [None]
  - Vomiting [None]
  - Influenza like illness [None]
